FAERS Safety Report 15072663 (Version 4)
Quarter: 2019Q4

REPORT INFORMATION
  Report Type: Report from Study
  Country: AT (occurrence: AT)
  Receive Date: 20180627
  Receipt Date: 20191226
  Transmission Date: 20200122
  Serious: Yes (Hospitalization)
  Sender: FDA-Public Use
  Company Number: AT-ROCHE-2114004

PATIENT
  Age: 75 Year
  Sex: Female
  Weight: 105 kg

DRUGS (44)
  1. ZOFRAN [Concomitant]
     Active Substance: ONDANSETRON HYDROCHLORIDE
     Route: 065
     Dates: start: 20180509, end: 20180509
  2. VELLOFENT [Concomitant]
     Route: 065
     Dates: start: 20180419, end: 20180519
  3. HALDOL [Concomitant]
     Active Substance: HALOPERIDOL
     Route: 065
     Dates: start: 20180409, end: 20180519
  4. LYRICA [Concomitant]
     Active Substance: PREGABALIN
     Dosage: ONGOING = NOT CHECKED
     Route: 065
     Dates: start: 20180409, end: 20180425
  5. MONOFER [Concomitant]
     Active Substance: IRON ISOMALTOSIDE 1000
     Indication: ANAEMIA
     Dosage: 100 MG/ML
     Route: 065
     Dates: start: 20180410, end: 20180410
  6. CONCOR [Concomitant]
     Active Substance: BISOPROLOL FUMARATE
     Route: 065
     Dates: start: 20180409, end: 20180519
  7. NEODOLPASSE [Concomitant]
     Active Substance: DICLOFENAC SODIUM\ORPHENADRINE CITRATE
     Route: 065
     Dates: start: 20180409, end: 20180417
  8. CALCIDURAN [Concomitant]
     Active Substance: ASCORBIC ACID\CALCIUM PHOSPHATE\CHOLECALCIFEROL\CITRIC ACID MONOHYDRATE
     Route: 065
     Dates: start: 20171115, end: 20180519
  9. ZOFRAN [Concomitant]
     Active Substance: ONDANSETRON HYDROCHLORIDE
     Route: 065
     Dates: start: 20171113, end: 20180307
  10. LASILACTON [Concomitant]
     Active Substance: FUROSEMIDE\SPIRONOLACTONE
     Route: 065
     Dates: start: 20180101, end: 20180329
  11. FORTECORTIN [DEXAMETHASONE] [Concomitant]
     Active Substance: DEXAMETHASONE
     Route: 065
     Dates: start: 20171113, end: 20180329
  12. HYDAL [Concomitant]
     Active Substance: HYDROMORPHONE HYDROCHLORIDE
     Route: 065
     Dates: start: 20180307, end: 20180415
  13. PANTOLOC [PANTOPRAZOLE] [Concomitant]
     Active Substance: PANTOPRAZOLE SODIUM
     Route: 065
     Dates: start: 20171113, end: 20180519
  14. ALOXI [Concomitant]
     Active Substance: PALONOSETRON HYDROCHLORIDE
     Route: 065
     Dates: start: 20180103, end: 20180307
  15. THYREX [Concomitant]
     Active Substance: LEVOTHYROXINE SODIUM
     Route: 065
     Dates: end: 20180519
  16. NOVALGIN (METAMIZOLE SODIUM) [Concomitant]
     Active Substance: METAMIZOLE SODIUM
     Route: 065
     Dates: start: 20171215
  17. ERYPO [EPOETIN ALFA] [Concomitant]
     Indication: ANAEMIA
     Route: 065
     Dates: start: 20180329, end: 20180519
  18. TRASTUZUMAB. [Suspect]
     Active Substance: TRASTUZUMAB
     Indication: HER-2 POSITIVE BREAST CANCER
     Dosage: MOST RECENT DOSE PRIOR TO THE EVENT: 03/JAN/2018
     Route: 042
     Dates: start: 20171113
  19. PACLITAXEL. [Suspect]
     Active Substance: PACLITAXEL
     Indication: HER-2 POSITIVE BREAST CANCER
     Dosage: MOST RECENT DOSE PRIOR TO THE EVENT 07/MAR/2018
     Route: 042
     Dates: start: 20180103
  20. ZOFRAN [Concomitant]
     Active Substance: ONDANSETRON HYDROCHLORIDE
     Route: 065
     Dates: start: 20171115, end: 20180519
  21. LASIX [Concomitant]
     Active Substance: FUROSEMIDE
     Route: 065
     Dates: start: 20180329, end: 20180519
  22. MOLAXOLE [Concomitant]
     Active Substance: POLYETHYLENE GLYCOL 3350\POTASSIUM CHLORIDE\SODIUM BICARBONATE\SODIUM CHLORIDE
     Dosage: ONGOING = NOT CHECKED
     Route: 065
     Dates: start: 20180409, end: 20180415
  23. XGEVA [Suspect]
     Active Substance: DENOSUMAB
     Indication: HER-2 POSITIVE BREAST CANCER
     Dosage: MOST RECENT DOSE OF DENOSUMAB: 19/MAY/2018
     Route: 058
     Dates: start: 20171109
  24. DIBONDRIN [Concomitant]
     Active Substance: DIPHENHYDRAMINE HYDROCHLORIDE
     Route: 065
     Dates: start: 20171113, end: 20180329
  25. ERYPO [EPOETIN ALFA] [Concomitant]
     Indication: ANAEMIA
     Route: 065
     Dates: start: 20180329
  26. TEMGESIC [Concomitant]
     Active Substance: BUPRENORPHINE HYDROCHLORIDE
     Dosage: ONGOING = NOT CHECKED
     Route: 065
     Dates: start: 20180409, end: 20180415
  27. TRANSTEC [Concomitant]
     Active Substance: BUPRENORPHINE
     Route: 065
     Dates: start: 20171227
  28. PERTUZUMAB. [Suspect]
     Active Substance: PERTUZUMAB
     Indication: HER-2 POSITIVE BREAST CANCER
     Dosage: MOST RECENT DOSE PRIOR TO THE EVENT: 03/JAN/2018
     Route: 042
     Dates: start: 20171113
  29. FORTECORTIN [DEXAMETHASONE] [Concomitant]
     Active Substance: DEXAMETHASONE
     Route: 065
     Dates: start: 20180509, end: 20180509
  30. LOVENOX [Concomitant]
     Active Substance: ENOXAPARIN SODIUM
     Route: 065
     Dates: start: 20180409, end: 20180419
  31. ANAEROBEX [Concomitant]
     Active Substance: METRONIDAZOLE
     Indication: DIARRHOEA
     Route: 065
     Dates: start: 20180425, end: 20180501
  32. TRANSTEC [Concomitant]
     Active Substance: BUPRENORPHINE
     Route: 065
     Dates: start: 20180411, end: 20180519
  33. DOCETAXEL. [Suspect]
     Active Substance: DOCETAXEL
     Indication: HER-2 POSITIVE BREAST CANCER
     Dosage: MOST RECENT DOSE PRIOR TO THE EVENT 05/DEC/2017
     Route: 042
     Dates: start: 20171113
  34. TRASTUZUMAB EMTANSINE [Suspect]
     Active Substance: ADO-TRASTUZUMAB EMTANSINE
     Indication: BREAST CANCER
     Route: 042
     Dates: start: 20180509, end: 20180519
  35. VOLTAREN [DICLOFENAC] [Concomitant]
     Active Substance: DICLOFENAC SODIUM
     Route: 065
     Dates: start: 20171215, end: 20180515
  36. VOLTAREN [DICLOFENAC] [Concomitant]
     Active Substance: DICLOFENAC SODIUM
     Route: 065
     Dates: start: 20180515, end: 20180519
  37. GLANDOMED [Concomitant]
     Route: 065
     Dates: start: 20171115, end: 20180519
  38. LONQUEX [Concomitant]
     Active Substance: LIPEGFILGRASTIM
     Route: 065
     Dates: start: 20171113, end: 20180329
  39. CEFUROXIME. [Concomitant]
     Active Substance: CEFUROXIME
     Route: 065
     Dates: start: 20180419, end: 20180424
  40. FRAGMIN [Concomitant]
     Active Substance: DALTEPARIN SODIUM
     Dosage: ONGOING = NOT CHECKED
     Route: 065
     Dates: start: 20180425, end: 20180427
  41. MAGNOSOLV [Concomitant]
     Route: 065
     Dates: start: 20171115, end: 20180425
  42. FORTECORTIN [DEXAMETHASONE] [Concomitant]
     Active Substance: DEXAMETHASONE
     Route: 065
     Dates: start: 20171113, end: 20180307
  43. DRONABINOL. [Concomitant]
     Active Substance: DRONABINOL
     Route: 065
     Dates: start: 20180321, end: 20180329
  44. HYDAL [Concomitant]
     Active Substance: HYDROMORPHONE HYDROCHLORIDE
     Dosage: ONGOING = CHECKED
     Route: 065
     Dates: start: 20171115

REACTIONS (2)
  - Nocturnal dyspnoea [Unknown]
  - Diarrhoea [Recovered/Resolved]

NARRATIVE: CASE EVENT DATE: 20180404
